FAERS Safety Report 8375495-1 (Version None)
Quarter: 2012Q1

REPORT INFORMATION
  Report Type: 
  Country: None (occurrence: None)
  Receive Date: 20120323
  Receipt Date: 20111201
  Transmission Date: 20120608
  Serious: Yes (Hospitalization, Other)
  Sender: FDA-Public Use
  Company Number: 163-21880-11022578

PATIENT
  Age: 71 Year
  Sex: Female
  Weight: 94.5 kg

DRUGS (6)
  1. REVLIMID [Suspect]
     Indication: MULTIPLE MYELOMA
     Dosage: 25 MG, DAILY FOR 3 WKS/1 WK OFF, PO 15 MG, 1 IN 1 D, PO
     Route: 048
     Dates: start: 20090301
  2. REVLIMID [Suspect]
     Indication: MULTIPLE MYELOMA
     Dosage: 25 MG, DAILY FOR 3 WKS/1 WK OFF, PO 15 MG, 1 IN 1 D, PO
     Route: 048
     Dates: start: 20080103
  3. REVLIMID [Suspect]
     Indication: MULTIPLE MYELOMA
     Dosage: 25 MG, DAILY FOR 3 WKS/1 WK OFF, PO 15 MG, 1 IN 1 D, PO
     Route: 048
     Dates: start: 20081101
  4. DEXAMETHASONE [Suspect]
     Indication: PRODUCT USED FOR UNKNOWN INDICATION
     Dosage: 15 MG, 1 IN 1 D,PO 15 MG, 1 IN 1 D, PO
     Route: 048
     Dates: start: 20090301
  5. DEXAMETHASONE [Suspect]
     Indication: PRODUCT USED FOR UNKNOWN INDICATION
     Dosage: 15 MG, 1 IN 1 D,PO 15 MG, 1 IN 1 D, PO
     Route: 048
     Dates: start: 20081101
  6. REVLIMID [Suspect]

REACTIONS (2)
  - SKIN ATROPHY [None]
  - CATARACT [None]
